FAERS Safety Report 5606351-7 (Version None)
Quarter: 2008Q1

REPORT INFORMATION
  Report Type: 
  Country: None (occurrence: None)
  Receive Date: 20080129
  Receipt Date: 20070725
  Transmission Date: 20080703
  Serious: Yes (Hospitalization)
  Sender: FDA-Public Use
  Company Number: A0664826A

PATIENT
  Age: 48 Year
  Sex: Female

DRUGS (2)
  1. BUPROPION HYDROCHLORIDE [Suspect]
     Dosage: 150MG TWICE PER DAY
     Route: 048
     Dates: start: 20070513, end: 20070515
  2. NO CONCURRENT MEDICATION [Concomitant]

REACTIONS (1)
  - CONVULSION [None]
